FAERS Safety Report 13426129 (Version 1)
Quarter: 2017Q2

REPORT INFORMATION
  Report Type: Spontaneous
  Country: US (occurrence: US)
  Receive Date: 20170411
  Receipt Date: 20170411
  Transmission Date: 20170830
  Serious: No
  Sender: FDA-Public Use
  Company Number: US-B.I. PHARMACEUTICALS,INC./RIDGEFIELD-2017-BI-020320

PATIENT
  Sex: Female

DRUGS (3)
  1. JANUMET [Concomitant]
     Active Substance: METFORMIN HYDROCHLORIDE\SITAGLIPTIN PHOSPHATE
     Indication: TYPE 2 DIABETES MELLITUS
     Dosage: QD;  FORM STRENGTH: 1000MG/100MG
     Route: 048
     Dates: start: 2015
  2. REPATHA [Concomitant]
     Active Substance: EVOLOCUMAB
     Indication: BLOOD CHOLESTEROL INCREASED
     Dosage: 2 TIMES PER MONTH;
     Route: 058
  3. PRADAXA [Suspect]
     Active Substance: DABIGATRAN ETEXILATE MESYLATE
     Indication: ATRIAL FIBRILLATION
     Dosage: BID;  FORM STRENGTH: 150 MG; FORMULATION: CAPSULE? ADMINISTRATION CORRECT? YES ?ACTION(S) TAKEN WITH
     Route: 048
     Dates: start: 2011

REACTIONS (5)
  - Fall [Recovered/Resolved]
  - Head injury [Recovered/Resolved]
  - Abdominal pain upper [Recovered/Resolved]
  - Eating disorder [Recovered/Resolved]
  - Tongue haemorrhage [Recovered/Resolved]

NARRATIVE: CASE EVENT DATE: 2015
